FAERS Safety Report 9989349 (Version 1)
Quarter: 2014Q1

REPORT INFORMATION
  Report Type: Spontaneous
  Country: NL (occurrence: NL)
  Receive Date: 20140310
  Receipt Date: 20140310
  Transmission Date: 20141002
  Serious: Yes (Hospitalization)
  Sender: FDA-Public Use
  Company Number: NL-BAYER-2014-032880

PATIENT
  Age: 33 Year
  Sex: Female
  Weight: 50 kg

DRUGS (1)
  1. MIRENA [Suspect]
     Indication: CONTRACEPTION
     Dosage: 20 MCG/24HR, CONT
     Route: 015
     Dates: start: 200911, end: 201401

REACTIONS (5)
  - Vaginal infection [Recovered/Resolved]
  - Acne [Recovered/Resolved]
  - Loss of libido [Recovering/Resolving]
  - Abdominal pain [Recovering/Resolving]
  - Endometritis [Recovering/Resolving]
